FAERS Safety Report 5248540-X (Version None)
Quarter: 2007Q1

REPORT INFORMATION
  Report Type: 
  Country: None (occurrence: None)
  Receive Date: 20070227
  Receipt Date: 20070216
  Transmission Date: 20070707
  Serious: Yes (Death)
  Sender: FDA-Public Use
  Company Number: FR-PFIZER INC-2007013182

PATIENT
  Sex: Male

DRUGS (1)
  1. CADUET [Suspect]
     Dates: start: 20070101, end: 20070211

REACTIONS (1)
  - DEATH [None]
